FAERS Safety Report 8380044-8 (Version None)
Quarter: 2012Q2

REPORT INFORMATION
  Report Type: 
  Country: None (occurrence: None)
  Receive Date: 20120523
  Receipt Date: 20120510
  Transmission Date: 20120825
  Serious: Yes (Hospitalization)
  Sender: FDA-Public Use
  Company Number: US-GLAXOSMITHKLINE-A0890951A

PATIENT
  Age: 70 Year
  Sex: Female
  Weight: 95.5 kg

DRUGS (6)
  1. HYDROCHLOROTHIAZIDE [Concomitant]
  2. CLONIDINE [Concomitant]
  3. AVANDIA [Suspect]
     Indication: DIABETES MELLITUS
     Dosage: 8MG PER DAY
     Route: 048
     Dates: end: 20070101
  4. METFORMIN HCL [Concomitant]
  5. TOPROL-XL [Concomitant]
  6. GLIPIZIDE [Concomitant]

REACTIONS (7)
  - CARDIAC FAILURE CONGESTIVE [None]
  - LEFT VENTRICULAR HYPERTROPHY [None]
  - CORONARY ARTERY OCCLUSION [None]
  - MITRAL VALVE INCOMPETENCE [None]
  - CORONARY ARTERY STENOSIS [None]
  - AORTIC VALVE STENOSIS [None]
  - PALPITATIONS [None]
